FAERS Safety Report 6187537-2 (Version None)
Quarter: 2009Q2

REPORT INFORMATION
  Report Type: 
  Country: None (occurrence: None)
  Receive Date: 20090512
  Receipt Date: 20090508
  Transmission Date: 20091009
  Serious: Yes (Hospitalization, Other)
  Sender: FDA-Public Use
  Company Number: US-ASTRAZENECA-2009UW03774

PATIENT
  Age: 44 Year
  Sex: Female
  Weight: 79.4 kg

DRUGS (5)
  1. SEROQUEL [Suspect]
     Indication: MENTAL DISORDER
     Route: 048
     Dates: start: 20010101
  2. SEROQUEL [Suspect]
     Route: 048
     Dates: start: 20010101
  3. EPHEDRINE [Concomitant]
     Dates: start: 19900101
  4. GEODON [Concomitant]
     Dates: start: 20080101, end: 20090101
  5. THORAZINE [Concomitant]
     Dates: start: 20080101

REACTIONS (5)
  - ILL-DEFINED DISORDER [None]
  - OBESITY [None]
  - OVERDOSE [None]
  - TYPE 2 DIABETES MELLITUS [None]
  - UPPER LIMB FRACTURE [None]
